FAERS Safety Report 8076172-7 (Version None)
Quarter: 2012Q1

REPORT INFORMATION
  Report Type: 
  Country: None (occurrence: None)
  Receive Date: 20120127
  Receipt Date: 20120119
  Transmission Date: 20120608
  Serious: Yes (Death, Life-Threatening, Other)
  Sender: FDA-Public Use
  Company Number: US-ROXANE LABORATORIES, INC.-2012-RO-00509RO

PATIENT
  Age: 67 Year
  Sex: Female

DRUGS (8)
  1. SIROLIMUS [Suspect]
     Indication: IMMUNOSUPPRESSANT DRUG THERAPY
     Dosage: 1 MG
  2. AMPHOTERICIN B [Suspect]
     Indication: ASPERGILLOSIS
     Route: 042
  3. AMPHOTERICIN B [Suspect]
     Indication: BRONCHOPULMONARY ASPERGILLOSIS
  4. PREDNISONE TAB [Suspect]
     Indication: IMMUNOSUPPRESSANT DRUG THERAPY
     Dosage: 7.5 MG
  5. TACROLIMUS [Suspect]
     Dosage: 1.5 MG
  6. VORICONAZOLE [Suspect]
     Indication: ASPERGILLOSIS
     Route: 048
  7. TACROLIMUS [Suspect]
     Indication: IMMUNOSUPPRESSANT DRUG THERAPY
     Dosage: 4 MG
  8. VORICONAZOLE [Suspect]
     Indication: BRONCHOPULMONARY ASPERGILLOSIS

REACTIONS (5)
  - CEREBRAL ISCHAEMIA [None]
  - ASPERGILLOSIS [None]
  - PLEURAL EFFUSION [None]
  - CONDITION AGGRAVATED [None]
  - BRONCHOPULMONARY ASPERGILLOSIS [None]
